FAERS Safety Report 16968191 (Version 1)
Quarter: 2019Q4

REPORT INFORMATION
  Report Type: Report from Study
  Country: US (occurrence: US)
  Receive Date: 20191028
  Receipt Date: 20191028
  Transmission Date: 20200122
  Serious: Yes (Hospitalization)
  Sender: FDA-Public Use
  Company Number: US-ALNYLAM PHARMACEUTICALS, INC.-ALN-2019-000811

PATIENT
  Sex: Male

DRUGS (1)
  1. ONPATTRO [Suspect]
     Active Substance: PATISIRAN SODIUM
     Indication: HEREDITARY NEUROPATHIC AMYLOIDOSIS
     Dosage: UNK UNK, Q3W
     Route: 042
     Dates: start: 20190807

REACTIONS (5)
  - Cardioversion [Unknown]
  - Atrial fibrillation [Unknown]
  - Product dose omission [Unknown]
  - Adverse event [Unknown]
  - Fluid retention [Unknown]

NARRATIVE: CASE EVENT DATE: 2019
